FAERS Safety Report 4365303-8 (Version None)
Quarter: 2004Q2

REPORT INFORMATION
  Report Type: 
  Country: None (occurrence: None)
  Receive Date: 20040521
  Receipt Date: 20040511
  Transmission Date: 20050107
  Serious: Yes (Death, Hospitalization)
  Sender: FDA-Public Use
  Company Number: 2004-BP-03531RA

PATIENT
  Age: 82 Year
  Sex: Female

DRUGS (1)
  1. TIOTROPIUM INHALATION POWDER (KAI) (TIOTROPIUM) [Suspect]
     Indication: CHRONIC OBSTRUCTIVE AIRWAYS DISEASE
     Dosage: 18 MCG (18 MCG, 18MCG/D)
     Route: 055
     Dates: start: 20040415, end: 20040430

REACTIONS (1)
  - RESPIRATORY FAILURE [None]
